FAERS Safety Report 9283447 (Version 1)
Quarter: 2013Q2

REPORT INFORMATION
  Report Type: Spontaneous
  Country: JP (occurrence: JP)
  Receive Date: 20130510
  Receipt Date: 20130510
  Transmission Date: 20140414
  Serious: Yes (Other)
  Sender: FDA-Public Use
  Company Number: PHHY2013JP045449

PATIENT
  Age: 76 Year
  Sex: Female

DRUGS (5)
  1. SULFAMETHOXAZOLE+TRIMETHOPRIM [Suspect]
     Indication: PNEUMOCYSTIS JIROVECII PNEUMONIA
     Dosage: 1 DF, UNK
  2. ALENDRONATE SODIUM [Concomitant]
  3. FAMOTIDINE [Concomitant]
  4. URSODIOL [Concomitant]
  5. PREDNISONE [Concomitant]

REACTIONS (3)
  - Malaise [Unknown]
  - Thrombocytopenia [Unknown]
  - Hyponatraemia [Recovered/Resolved]
